FAERS Safety Report 6119423-8 (Version None)
Quarter: 2009Q1

REPORT INFORMATION
  Report Type: 
  Country: None (occurrence: None)
  Receive Date: 20090316
  Receipt Date: 20090306
  Transmission Date: 20090719
  Serious: Yes (Hospitalization)
  Sender: FDA-Public Use
  Company Number: A0772845A

PATIENT
  Age: 55 Year
  Sex: Female
  Weight: 79.5 kg

DRUGS (2)
  1. AVANDIA [Suspect]
     Indication: DIABETES MELLITUS
     Dosage: 4MG PER DAY
     Route: 048
     Dates: start: 20001227, end: 20061111
  2. MULTIPLE MEDICATIONS [Concomitant]

REACTIONS (3)
  - ACUTE RESPIRATORY FAILURE [None]
  - CARDIAC FAILURE CONGESTIVE [None]
  - MYOCARDIAL INFARCTION [None]
